FAERS Safety Report 10727874 (Version 2)
Quarter: 2015Q1

REPORT INFORMATION
  Report Type: Spontaneous
  Country: US (occurrence: US)
  Receive Date: 20150121
  Receipt Date: 20150128
  Transmission Date: 20150721
  Serious: Yes (Hospitalization)
  Sender: FDA-Public Use
  Company Number: US-JNJFOC-20150112553

PATIENT
  Age: 67 Year
  Sex: Female

DRUGS (16)
  1. COLACE [Concomitant]
     Active Substance: DOCUSATE SODIUM
  2. MS CONTIN [Concomitant]
     Active Substance: MORPHINE SULFATE
  3. NIFEDIPINE. [Concomitant]
     Active Substance: NIFEDIPINE
  4. COMPAZINE [Concomitant]
     Active Substance: PROCHLORPERAZINE MALEATE
  5. BACTRIM [Concomitant]
     Active Substance: SULFAMETHOXAZOLE\TRIMETHOPRIM
  6. DILAUDID [Concomitant]
     Active Substance: HYDROMORPHONE HYDROCHLORIDE
  7. NEXIUM [Concomitant]
     Active Substance: ESOMEPRAZOLE MAGNESIUM
  8. FOLIC ACID. [Concomitant]
     Active Substance: FOLIC ACID
  9. TYLENOL [Concomitant]
     Active Substance: ACETAMINOPHEN
  10. IMBRUVICA [Suspect]
     Active Substance: IBRUTINIB
     Indication: CHRONIC LYMPHOCYTIC LEUKAEMIA
     Route: 048
     Dates: start: 20140702, end: 20150108
  11. BACLOFEN. [Concomitant]
     Active Substance: BACLOFEN
  12. CELEBREX [Concomitant]
     Active Substance: CELECOXIB
  13. XANAX [Concomitant]
     Active Substance: ALPRAZOLAM
  14. PLAQUENIL [Concomitant]
     Active Substance: HYDROXYCHLOROQUINE SULFATE
  15. CALCIUM AND VITAMIN D [Concomitant]
     Active Substance: CALCIUM\VITAMIN D
  16. CYMBALTA [Concomitant]
     Active Substance: DULOXETINE HYDROCHLORIDE

REACTIONS (5)
  - Muscle disorder [Not Recovered/Not Resolved]
  - Spinal compression fracture [Unknown]
  - Fall [Unknown]
  - Bone disorder [Not Recovered/Not Resolved]
  - Back pain [Unknown]

NARRATIVE: CASE EVENT DATE: 2014
